FAERS Safety Report 4627938-4 (Version None)
Quarter: 2005Q2

REPORT INFORMATION
  Report Type: 
  Country: None (occurrence: None)
  Receive Date: 20050401
  Receipt Date: 20030729
  Transmission Date: 20051028
  Serious: Yes (Other)
  Sender: FDA-Public Use
  Company Number: 5670

PATIENT
  Age: 68 Year
  Sex: Female

DRUGS (4)
  1. AREDIA [Suspect]
     Dosage: 90 MG MONTHLY IV
     Route: 042
     Dates: start: 19990101, end: 19990401
  2. AREDIA [Suspect]
     Dosage: 180 MG MONTHLY IV
     Route: 042
     Dates: start: 19990501, end: 20000201
  3. AREDIA [Suspect]
     Dosage: 180 MG OTH IV
     Route: 042
     Dates: start: 20000301, end: 20000801
  4. DEXAMETHASONE [Concomitant]

REACTIONS (2)
  - GLOMERULONEPHRITIS FOCAL [None]
  - NEPHROTIC SYNDROME [None]
